FAERS Safety Report 8798672 (Version 1)
Quarter: 2012Q4

REPORT INFORMATION
  Report Type: 
  Country: AU (occurrence: AU)
  Receive Date: 20120920
  Receipt Date: 20120920
  Transmission Date: 20130627
  Serious: Yes (Hospitalization)
  Sender: FDA-Public Use
  Company Number: AU-GLAXOSMITHKLINE-B0831754A

PATIENT
  Age: 35 Year
  Sex: Male

DRUGS (1)
  1. NICOTINE [Suspect]
     Indication: EX-TOBACCO USER
     Route: 062

REACTIONS (10)
  - Mania [Recovered/Resolved]
  - Mental impairment [Recovered/Resolved]
  - Energy increased [Unknown]
  - Insomnia [Recovered/Resolved]
  - Irritability [Unknown]
  - Anger [Unknown]
  - Aggression [Unknown]
  - Psychomotor hyperactivity [Recovered/Resolved]
  - Pressure of speech [Unknown]
  - Elevated mood [Unknown]
